FAERS Safety Report 18054738 (Version 2)
Quarter: 2020Q3

REPORT INFORMATION
  Report Type: Spontaneous
  Country: JP (occurrence: JP)
  Receive Date: 20200722
  Receipt Date: 20200803
  Transmission Date: 20201103
  Serious: Yes (Other)
  Sender: FDA-Public Use
  Company Number: JP-OTSUKA-2020_016645

PATIENT
  Age: 8 Decade
  Sex: Female

DRUGS (2)
  1. SAMSCA [Suspect]
     Active Substance: TOLVAPTAN
     Dosage: 3.75MG/DAY, FREQUENCY UNKNOWN
     Route: 048
     Dates: start: 20200709
  2. SAMSCA [Suspect]
     Active Substance: TOLVAPTAN
     Indication: PLEURAL EFFUSION
     Dosage: 7.5MG/DAY, FREQUENCY UNKNOWN
     Route: 048
     Dates: start: 20200707, end: 20200708

REACTIONS (3)
  - Blood sodium increased [Recovering/Resolving]
  - Product use in unapproved indication [Unknown]
  - Lymphoma [Unknown]

NARRATIVE: CASE EVENT DATE: 20200708
